FAERS Safety Report 16340464 (Version 1)
Quarter: 2019Q2

REPORT INFORMATION
  Report Type: Spontaneous
  Country: US (occurrence: US)
  Receive Date: 20190522
  Receipt Date: 20190522
  Transmission Date: 20190711
  Serious: No
  Sender: FDA-Public Use
  Company Number: US-UNITED THERAPEUTICS-UNT-2019-004335

PATIENT
  Sex: Female
  Weight: 79.37 kg

DRUGS (2)
  1. REMODULIN [Suspect]
     Active Substance: TREPROSTINIL
     Indication: PULMONARY ARTERIAL HYPERTENSION
     Dosage: 0.04 ?G/KG, CONTINUING
     Route: 058
  2. REMODULIN [Suspect]
     Active Substance: TREPROSTINIL
     Indication: PULMONARY ARTERIAL HYPERTENSION
     Dosage: 0.02125 ?G/KG, CONTINUING
     Route: 058
     Dates: start: 20181103

REACTIONS (10)
  - Diarrhoea [Not Recovered/Not Resolved]
  - Limb discomfort [Unknown]
  - Infusion site nodule [Unknown]
  - Infusion site pain [Unknown]
  - Infusion site discharge [Unknown]
  - Dizziness [Unknown]
  - Device dislocation [Unknown]
  - Therapy non-responder [Unknown]
  - Infusion site induration [Unknown]
  - Poor peripheral circulation [Unknown]
